FAERS Safety Report 4342489-2 (Version None)
Quarter: 2004Q1

REPORT INFORMATION
  Report Type: 
  Country: None (occurrence: None)
  Receive Date: 20040213
  Receipt Date: 20040114
  Transmission Date: 20041129
  Serious: No
  Sender: FDA-Public Use
  Company Number: 356220

PATIENT
  Age: 28 Year
  Sex: Male

DRUGS (4)
  1. PEGASYS [Suspect]
     Indication: HEPATITIS C
     Dosage: 180 MCG 1 PER WEEK SUBCUTANEOUS
     Route: 058
     Dates: start: 20031114
  2. RIBAVIRIN [Concomitant]
  3. TMP/SMX (SULFAMETHOXAZOLE/TRIMETHOPRIM) [Concomitant]
  4. PAXIL [Concomitant]

REACTIONS (1)
  - RASH [None]
